FAERS Safety Report 19496724 (Version 1)
Quarter: 2021Q3

REPORT INFORMATION
  Report Type: Spontaneous
  Country: US (occurrence: US)
  Receive Date: 20210704
  Receipt Date: 20210704
  Transmission Date: 20211014
  Serious: No
  Sender: FDA-Public Use
  Company Number: None

PATIENT
  Age: 68 Year
  Sex: Female
  Weight: 67.05 kg

DRUGS (3)
  1. DICLOFENAC EPOLAMIN TOPICAL SYSTEM 1.3% [Suspect]
     Active Substance: DICLOFENAC EPOLAMINE
     Indication: PAIN IN EXTREMITY
     Dosage: ?          QUANTITY:2 PATCH(ES);?
     Route: 061
  2. SYNTHROID [Concomitant]
     Active Substance: LEVOTHYROXINE SODIUM
  3. LITHIUM. [Concomitant]
     Active Substance: LITHIUM

REACTIONS (2)
  - Blood blister [None]
  - Drug ineffective [None]

NARRATIVE: CASE EVENT DATE: 20210703
